FAERS Safety Report 8491423-2 (Version None)
Quarter: 2012Q2

REPORT INFORMATION
  Report Type: 
  Country: None (occurrence: None)
  Receive Date: 20120627
  Receipt Date: 20120612
  Transmission Date: 20120825
  Serious: Yes (Other)
  Sender: FDA-Public Use
  Company Number: JPI-P-021995

PATIENT
  Age: 34 Year
  Sex: Female

DRUGS (1)
  1. XYREM [Suspect]
     Indication: PRODUCT USED FOR UNKNOWN INDICATION
     Dosage: 6 GM (3 GM, 2 IN 1 D), ORAL
     Route: 048
     Dates: start: 20050804

REACTIONS (5)
  - PELVIC PAIN [None]
  - WOUND DEHISCENCE [None]
  - VAGINAL HAEMORRHAGE [None]
  - ENDOMETRIOSIS [None]
  - INCISION SITE COMPLICATION [None]
